FAERS Safety Report 8983738 (Version 3)
Quarter: 2013Q1

REPORT INFORMATION
  Report Type: Report from Study
  Country: DE (occurrence: DE)
  Receive Date: 20121224
  Receipt Date: 20130208
  Transmission Date: 20140127
  Serious: Yes (Death, Hospitalization)
  Sender: FDA-Public Use
  Company Number: DE-ROCHE-1141917

PATIENT
  Age: 61 Year
  Sex: Female
  Weight: 41 kg

DRUGS (5)
  1. TRASTUZUMAB [Suspect]
     Indication: GASTRIC CANCER
     Route: 042
     Dates: start: 20100929, end: 20100929
  2. TRASTUZUMAB [Suspect]
     Route: 042
  3. 5-FU [Concomitant]
     Indication: GASTRIC CANCER
     Route: 042
     Dates: start: 20100929, end: 20100929
  4. DOCETAXEL [Concomitant]
     Indication: GASTRIC CANCER
     Route: 042
     Dates: start: 20100929, end: 20100929
  5. CISPLATIN [Concomitant]
     Indication: GASTRIC CANCER
     Route: 042
     Dates: start: 20100929, end: 20100929

REACTIONS (3)
  - Malignant neoplasm progression [Fatal]
  - Rectal haemorrhage [Fatal]
  - Anaemia [Recovered/Resolved]
